FAERS Safety Report 6411889-9 (Version None)
Quarter: 2009Q4

REPORT INFORMATION
  Report Type: 
  Country: None (occurrence: None)
  Receive Date: 20091023
  Receipt Date: 20091012
  Transmission Date: 20100525
  Serious: Yes (Other)
  Sender: FDA-Public Use
  Company Number: FR-CELGENEUS-056-50794-09101044

PATIENT
  Sex: Female

DRUGS (1)
  1. VIDAZA [Suspect]
     Indication: MYELODYSPLASTIC SYNDROME
     Route: 058
     Dates: start: 20081201

REACTIONS (4)
  - BILE DUCT CANCER [None]
  - CHOLESTASIS [None]
  - CYTOLYTIC HEPATITIS [None]
  - METASTATIC NEOPLASM [None]
